FAERS Safety Report 11218555 (Version 1)
Quarter: 2015Q2

REPORT INFORMATION
  Report Type: Spontaneous
  Country: US (occurrence: US)
  Receive Date: 20150625
  Receipt Date: 20150625
  Transmission Date: 20150821
  Serious: No
  Sender: FDA-Public Use
  Company Number: US-MYLANLABS-2014M1001175

PATIENT
  Age: 97 Year
  Sex: Female
  Weight: 58.96 kg

DRUGS (7)
  1. SYNTHROID [Concomitant]
     Active Substance: LEVOTHYROXINE SODIUM
  2. CORTISOL [Concomitant]
     Active Substance: HYDROCORTISONE
  3. PRIMIDONE. [Concomitant]
     Active Substance: PRIMIDONE
  4. PERFOROMIST [Suspect]
     Active Substance: FORMOTEROL FUMARATE DIHYDRATE
     Dosage: 20 ?G, QD
     Dates: start: 20140611
  5. TRAMADOL [Concomitant]
     Active Substance: TRAMADOL
  6. ECOTRIN [Concomitant]
     Active Substance: ASPIRIN
  7. SPIRIVA [Concomitant]
     Active Substance: TIOTROPIUM BROMIDE MONOHYDRATE

REACTIONS (3)
  - Gait disturbance [Not Recovered/Not Resolved]
  - Reaction to drug excipients [Not Recovered/Not Resolved]
  - Muscular weakness [Not Recovered/Not Resolved]
